FAERS Safety Report 6984304-4 (Version None)
Quarter: 2010Q3

REPORT INFORMATION
  Report Type: 
  Country: None (occurrence: None)
  Receive Date: 20100915
  Receipt Date: 20100907
  Transmission Date: 20110219
  Serious: Yes (Hospitalization)
  Sender: FDA-Public Use
  Company Number: US-US-EMD SERONO, INC.-230133M09USA

PATIENT
  Sex: Female
  Weight: 64 kg

DRUGS (6)
  1. REBIF [Suspect]
     Indication: RELAPSING-REMITTING MULTIPLE SCLEROSIS
     Route: 058
     Dates: start: 20061215
  2. ENABLEX [Concomitant]
  3. ZOCOR [Concomitant]
  4. BENTYL [Concomitant]
  5. CITRICAL [Concomitant]
  6. MULTI-VITAMIN [Concomitant]

REACTIONS (6)
  - DEPRESSION [None]
  - GAIT DISTURBANCE [None]
  - LEFT ATRIAL DILATATION [None]
  - SYNCOPE [None]
  - UPPER RESPIRATORY TRACT INFECTION [None]
  - URINARY TRACT INFECTION [None]
